FAERS Safety Report 6452200-7 (Version None)
Quarter: 2009Q4

REPORT INFORMATION
  Report Type: 
  Country: None (occurrence: None)
  Receive Date: 20091123
  Receipt Date: 20090910
  Transmission Date: 20100525
  Serious: Yes (Hospitalization, Other)
  Sender: FDA-Public Use
  Company Number: US-AMGEN-QUU363941

PATIENT
  Sex: Male
  Weight: 107.6 kg

DRUGS (8)
  1. ENBREL [Suspect]
     Indication: PSORIATIC ARTHROPATHY
  2. ENBREL [Suspect]
     Indication: PSORIASIS
  3. HUMIRA [Suspect]
     Indication: PSORIATIC ARTHROPATHY
     Dates: start: 20090722, end: 20090727
  4. HUMIRA [Suspect]
     Indication: PSORIASIS
  5. METOPROLOL TARTRATE [Concomitant]
  6. ATORVASTATIN CALCIUM [Concomitant]
  7. ACETYLSALICYLIC ACID [Concomitant]
  8. DIOVAN HCT [Concomitant]

REACTIONS (11)
  - ALANINE AMINOTRANSFERASE INCREASED [None]
  - ARTHRALGIA [None]
  - ASPARTATE AMINOTRANSFERASE INCREASED [None]
  - CEREBROVASCULAR ACCIDENT [None]
  - CHILLS [None]
  - DRUG INEFFECTIVE [None]
  - EMBOLISM [None]
  - HYPERSENSITIVITY [None]
  - INJECTION SITE REACTION [None]
  - PYREXIA [None]
  - RASH [None]
